FAERS Safety Report 4382566-3 (Version None)
Quarter: 2004Q2

REPORT INFORMATION
  Report Type: 
  Country: None (occurrence: None)
  Receive Date: 20040622
  Receipt Date: 20040318
  Transmission Date: 20050107
  Serious: Yes (Death, Other)
  Sender: FDA-Public Use
  Company Number: JP-MERCK-0403USA01932

PATIENT
  Age: 74 Year
  Sex: Female

DRUGS (7)
  1. AMINO ACIDS (UNSPECIFIED) [Concomitant]
     Route: 065
  2. PEPCID [Suspect]
     Route: 042
     Dates: start: 20040304, end: 20040315
  3. FLUMARIN [Concomitant]
     Route: 065
  4. HUMULIN R [Concomitant]
     Route: 065
  5. PREDONINE [Concomitant]
     Route: 065
     Dates: start: 20040304
  6. SODIUM CHLORIDE [Concomitant]
     Route: 065
  7. VITAMEDIN [Concomitant]
     Route: 065

REACTIONS (5)
  - ADRENOCORTICAL INSUFFICIENCY CHRONIC [None]
  - DIABETES MELLITUS [None]
  - GASTROINTESTINAL MUCOSAL DISORDER [None]
  - PEMPHIGOID [None]
  - THROMBOCYTOPENIA [None]
